FAERS Safety Report 7769561-9 (Version None)
Quarter: 2011Q3

REPORT INFORMATION
  Report Type: 
  Country: None (occurrence: None)
  Receive Date: 20110922
  Receipt Date: 20110523
  Transmission Date: 20111222
  Serious: Yes (Other)
  Sender: FDA-Public Use
  Company Number: US-ASTRAZENECA-2011SE31541

PATIENT
  Age: 32 Year
  Sex: Male
  Weight: 127 kg

DRUGS (4)
  1. SAPHRIS [Suspect]
     Route: 065
  2. GEODON [Suspect]
     Route: 065
     Dates: start: 20110506
  3. SEROQUEL [Suspect]
     Route: 048
  4. GEODON [Suspect]
     Indication: BIPOLAR DISORDER
     Route: 065
     Dates: start: 20040101

REACTIONS (2)
  - WEIGHT INCREASED [None]
  - VISION BLURRED [None]
